FAERS Safety Report 18170859 (Version 4)
Quarter: 2024Q1

REPORT INFORMATION
  Report Type: Spontaneous
  Country: US (occurrence: US)
  Receive Date: 20200819
  Receipt Date: 20240110
  Transmission Date: 20240410
  Serious: Yes (Other)
  Sender: FDA-Public Use
  Company Number: US-GILEAD-2020-0489989

PATIENT
  Age: 39 Year
  Sex: Female
  Weight: 107.03 kg

DRUGS (34)
  1. TRUVADA [Suspect]
     Active Substance: EMTRICITABINE\TENOFOVIR DISOPROXIL FUMARATE
     Indication: HIV infection
     Dosage: UNK
     Route: 048
     Dates: start: 201404, end: 20180530
  2. TRUVADA [Suspect]
     Active Substance: EMTRICITABINE\TENOFOVIR DISOPROXIL FUMARATE
     Dosage: UNK
     Route: 048
     Dates: start: 200608, end: 201103
  3. VIREAD [Suspect]
     Active Substance: TENOFOVIR DISOPROXIL FUMARATE
     Indication: HIV infection
     Dosage: UNK
     Route: 048
     Dates: start: 201103, end: 201404
  4. VIREAD [Suspect]
     Active Substance: TENOFOVIR DISOPROXIL FUMARATE
     Dosage: UNK
     Route: 048
     Dates: start: 2011, end: 2013
  5. PREZCOBIX [Concomitant]
     Active Substance: COBICISTAT\DARUNAVIR ETHANOLATE
  6. TRIUMEQ [Concomitant]
     Active Substance: ABACAVIR SULFATE\DOLUTEGRAVIR SODIUM\LAMIVUDINE
  7. ABACAVIR\LAMIVUDINE [Concomitant]
     Active Substance: ABACAVIR\LAMIVUDINE
  8. AMOXICILLIN\CLAVULANIC ACID [Concomitant]
     Active Substance: AMOXICILLIN\CLAVULANIC ACID
  9. ATAZANAVIR [Concomitant]
     Active Substance: ATAZANAVIR
  10. AZITHROMYCIN [Concomitant]
     Active Substance: AZITHROMYCIN
  11. BUPROPION [Concomitant]
     Active Substance: BUPROPION
  12. CITALOPRAM [Concomitant]
     Active Substance: CITALOPRAM HYDROBROMIDE
  13. DAPSONE [Concomitant]
     Active Substance: DAPSONE
  14. DARUNAVIR [Concomitant]
     Active Substance: DARUNAVIR
  15. DOXYCYCLINE [Concomitant]
     Active Substance: DOXYCYCLINE
  16. ACETAMINOPHEN\HYDROCODONE [Concomitant]
     Active Substance: ACETAMINOPHEN\HYDROCODONE
  17. HYDROXYZINE HYDROCHLORIDE [Concomitant]
     Active Substance: HYDROXYZINE HYDROCHLORIDE
  18. IBUPROFEN [Concomitant]
     Active Substance: IBUPROFEN
  19. METRONIDAZOLE [Concomitant]
     Active Substance: METRONIDAZOLE
  20. NAPROXEN [Concomitant]
     Active Substance: NAPROXEN
  21. NELFINAVIR [Concomitant]
     Active Substance: NELFINAVIR
  22. NEVIRAPINE [Concomitant]
     Active Substance: NEVIRAPINE
  23. PROCHLORPERAZINE [Concomitant]
     Active Substance: PROCHLORPERAZINE
  24. QUETIAPINE [Concomitant]
     Active Substance: QUETIAPINE
  25. RALTEGRAVIR [Concomitant]
     Active Substance: RALTEGRAVIR
  26. RITONAVIR [Concomitant]
     Active Substance: RITONAVIR
  27. SERTRALINE [Concomitant]
     Active Substance: SERTRALINE HYDROCHLORIDE
  28. SULFAMETHOXAZOLE\TRIMETHOPRIM [Concomitant]
     Active Substance: SULFAMETHOXAZOLE\TRIMETHOPRIM
  29. TRAZODONE [Concomitant]
     Active Substance: TRAZODONE HYDROCHLORIDE
  30. VALACYCLOVIR [Concomitant]
     Active Substance: VALACYCLOVIR HYDROCHLORIDE
  31. CLONAZEPAM [Concomitant]
     Active Substance: CLONAZEPAM
  32. ISENTRESS [Concomitant]
     Active Substance: RALTEGRAVIR POTASSIUM
  33. NORVIR [Concomitant]
     Active Substance: RITONAVIR
  34. REYATAZ [Concomitant]
     Active Substance: ATAZANAVIR SULFATE

REACTIONS (8)
  - Shoulder fracture [Unknown]
  - Osteopenia [Not Recovered/Not Resolved]
  - Bone demineralisation [Unknown]
  - Pain [Not Recovered/Not Resolved]
  - Emotional distress [Not Recovered/Not Resolved]
  - Anxiety [Not Recovered/Not Resolved]
  - Anhedonia [Not Recovered/Not Resolved]
  - General physical health deterioration [Unknown]

NARRATIVE: CASE EVENT DATE: 20181009
